FAERS Safety Report 9198695 (Version 3)
Quarter: 2013Q2

REPORT INFORMATION
  Report Type: Spontaneous
  Country: JP (occurrence: JP)
  Receive Date: 20130329
  Receipt Date: 20130517
  Transmission Date: 20140414
  Serious: Yes (Hospitalization, Other)
  Sender: FDA-Public Use
  Company Number: JP-PFIZER INC-2013099384

PATIENT
  Age: 71 Year
  Sex: Male

DRUGS (6)
  1. LYRICA [Suspect]
     Indication: CERVICOBRACHIAL SYNDROME
     Dosage: UNK
     Route: 048
  2. LYRICA [Suspect]
     Dosage: 75 MG, 1X/DAY
     Route: 048
     Dates: start: 20130227, end: 20130325
  3. NEUROTROPIN [Concomitant]
     Dosage: 8 IU, 2X/DAY
     Route: 048
     Dates: start: 20130227
  4. MIYA BM [Concomitant]
     Dosage: 2 DF, 3X/DAY
     Route: 048
     Dates: start: 20130227
  5. CLEANAL [Concomitant]
     Indication: CHRONIC OBSTRUCTIVE PULMONARY DISEASE
     Dosage: 400 MG, 3X/DAY
     Route: 048
     Dates: start: 20130227
  6. LAMICTAL [Concomitant]
     Indication: CERVICOBRACHIAL SYNDROME
     Dosage: 25 MG, 1X/DAY
     Route: 048
     Dates: start: 20130306

REACTIONS (1)
  - Neutrophil count decreased [Recovered/Resolved]
